FAERS Safety Report 18791352 (Version 2)
Quarter: 2021Q1

REPORT INFORMATION
  Report Type: Report from Study
  Country: AU (occurrence: AU)
  Receive Date: 20210126
  Receipt Date: 20210202
  Transmission Date: 20210419
  Serious: Yes (Hospitalization)
  Sender: FDA-Public Use
  Company Number: AU-EISAI MEDICAL RESEARCH-EC-2021-086950

PATIENT
  Age: 70 Year
  Sex: Female
  Weight: 110.7 kg

DRUGS (6)
  1. PEMBROLIZUMAB. [Suspect]
     Active Substance: PEMBROLIZUMAB
     Indication: ENDOMETRIAL CANCER
     Route: 041
     Dates: start: 20201222, end: 20201222
  2. APIXABAN [Concomitant]
     Active Substance: APIXABAN
     Dates: start: 201601
  3. LENVATINIB [Suspect]
     Active Substance: LENVATINIB
     Indication: ENDOMETRIAL CANCER
     Route: 048
     Dates: start: 20201222, end: 20210112
  4. PEMBROLIZUMAB. [Suspect]
     Active Substance: PEMBROLIZUMAB
     Route: 041
     Dates: start: 20210113, end: 20210113
  5. IRON [Concomitant]
     Active Substance: IRON
     Dates: start: 201901
  6. MOBIC [Concomitant]
     Active Substance: MELOXICAM
     Dates: start: 20191224

REACTIONS (2)
  - Palpitations [Recovered/Resolved]
  - Tremor [Not Recovered/Not Resolved]

NARRATIVE: CASE EVENT DATE: 20210114
